FAERS Safety Report 9356439 (Version 3)
Quarter: 2013Q4

REPORT INFORMATION
  Report Type: Spontaneous
  Country: US (occurrence: US)
  Receive Date: 20130619
  Receipt Date: 20131025
  Transmission Date: 20140711
  Serious: Yes (Death, Hospitalization, Other)
  Sender: FDA-Public Use
  Company Number: US-009507513-1306USA003414

PATIENT
  Sex: Female
  Weight: 83.45 kg

DRUGS (9)
  1. JANUVIA [Suspect]
     Dosage: UNK
     Route: 048
     Dates: start: 201108, end: 20130123
  2. JANUVIA [Suspect]
     Dosage: 100 MG, QD
     Route: 048
     Dates: start: 20120410, end: 20130129
  3. JUVISYNC [Suspect]
     Dosage: 100-20 MG, QD
     Route: 048
     Dates: start: 20120314, end: 20120409
  4. METFORMIN [Concomitant]
     Indication: TYPE 2 DIABETES MELLITUS
  5. GLYBURIDE [Concomitant]
     Indication: TYPE 2 DIABETES MELLITUS
  6. MICRONASE [Concomitant]
     Indication: TYPE 2 DIABETES MELLITUS
  7. VENLAFAXINE HYDROCHLORIDE [Concomitant]
     Indication: DEPRESSION
  8. HYDROCODONE [Concomitant]
     Indication: BACK PAIN
  9. GABAPENTIN [Concomitant]
     Indication: BACK PAIN

REACTIONS (41)
  - Pancreatic carcinoma [Fatal]
  - Respiratory failure [Fatal]
  - Sepsis [Unknown]
  - Metastases to lung [Unknown]
  - Encephalopathy [Unknown]
  - Pneumonia [Fatal]
  - Cough [Unknown]
  - Dyspnoea [Unknown]
  - Pancreatitis chronic [Not Recovered/Not Resolved]
  - Gastric ulcer [Unknown]
  - Large intestine polyp [Unknown]
  - Chest pain [Unknown]
  - Facial pain [Unknown]
  - Neck pain [Unknown]
  - Emphysema [Unknown]
  - Polypectomy [Unknown]
  - Hypertension [Unknown]
  - Atrial fibrillation [Unknown]
  - Gastric ulcer [Unknown]
  - Hiatus hernia [Unknown]
  - Chronic obstructive pulmonary disease [Not Recovered/Not Resolved]
  - Foreign body in eye [Unknown]
  - Arthroscopy [Unknown]
  - Tonsillectomy [Unknown]
  - Conjunctival pallor [Unknown]
  - Dry mouth [Unknown]
  - Tachycardia [Unknown]
  - Clubbing [Unknown]
  - Hepatic steatosis [Unknown]
  - Splenic granuloma [Unknown]
  - Spondylolisthesis [Unknown]
  - Pulmonary mass [Unknown]
  - Atrial fibrillation [Unknown]
  - Streptococcal bacteraemia [Unknown]
  - Neutropenia [Unknown]
  - Gastrooesophageal reflux disease [Unknown]
  - Dizziness [Unknown]
  - Headache [Unknown]
  - Back pain [Unknown]
  - Drug ineffective [Unknown]
  - Constipation [Unknown]
